FAERS Safety Report 17031333 (Version 34)
Quarter: 2023Q4

REPORT INFORMATION
  Report Type: Spontaneous
  Country: US (occurrence: US)
  Receive Date: 20191114
  Receipt Date: 20231128
  Transmission Date: 20240110
  Serious: Yes (Hospitalization, Other)
  Sender: FDA-Public Use
  Company Number: US-PFIZER INC-2019490051

PATIENT
  Age: 74 Year
  Sex: Female
  Weight: 88.449 kg

DRUGS (9)
  1. RETACRIT [Suspect]
     Active Substance: EPOETIN ALFA-EPBX
     Indication: Bone marrow infiltration
     Dosage: 40000 IU, 2X/WEEK
  2. RETACRIT [Suspect]
     Active Substance: EPOETIN ALFA-EPBX
     Indication: Chronic myelomonocytic leukaemia
     Dosage: 40000, EVERY 15 DAYS
     Route: 058
  3. RETACRIT [Suspect]
     Active Substance: EPOETIN ALFA-EPBX
     Indication: Breast cancer female
     Dosage: 10000 IU
  4. RETACRIT [Suspect]
     Active Substance: EPOETIN ALFA-EPBX
     Indication: Full blood count decreased
     Dosage: 40000 IU, 2X/WEEK
     Route: 058
  5. RETACRIT [Suspect]
     Active Substance: EPOETIN ALFA-EPBX
     Indication: Haemoglobin decreased
     Dosage: 40000 ML
  6. RETACRIT [Suspect]
     Active Substance: EPOETIN ALFA-EPBX
     Dosage: 40000 IU
     Dates: start: 20230126
  7. RETACRIT [Suspect]
     Active Substance: EPOETIN ALFA-EPBX
     Dosage: 40000 IU, EVERY 2 WEEKS
  8. RETACRIT [Suspect]
     Active Substance: EPOETIN ALFA-EPBX
     Dosage: 40000 IU (EACH VIAL), 2X/WEEK
  9. RETACRIT [Suspect]
     Active Substance: EPOETIN ALFA-EPBX
     Dosage: 40000 IU

REACTIONS (15)
  - Product dose omission issue [Unknown]
  - Full blood count decreased [Recovering/Resolving]
  - Haemoglobin decreased [Not Recovered/Not Resolved]
  - Nausea [Unknown]
  - Drug ineffective [Unknown]
  - Off label use [Unknown]
  - Product prescribing issue [Unknown]
  - Nasopharyngitis [Unknown]
  - Pruritus [Not Recovered/Not Resolved]
  - Urticaria [Not Recovered/Not Resolved]
  - Skin disorder [Not Recovered/Not Resolved]
  - Fatigue [Unknown]
  - Hiatus hernia [Unknown]
  - Gastrointestinal disorder [Unknown]
  - Anxiety [Unknown]

NARRATIVE: CASE EVENT DATE: 20200107
